FAERS Safety Report 6833865-4 (Version None)
Quarter: 2010Q3

REPORT INFORMATION
  Report Type: 
  Country: None (occurrence: None)
  Receive Date: 20100712
  Receipt Date: 20070330
  Transmission Date: 20110219
  Serious: No
  Sender: FDA-Public Use
  Company Number: US-PFIZER INC-2007028140

PATIENT
  Sex: Female
  Weight: 40.82 kg

DRUGS (8)
  1. CHANTIX [Suspect]
     Indication: SMOKING CESSATION THERAPY
     Dates: start: 20070326, end: 20070329
  2. POTASSIUM [Concomitant]
  3. FUROSEMIDE [Concomitant]
  4. SERAX [Concomitant]
  5. BELLERGAL-S [Concomitant]
  6. TYLENOL W/ CODEINE NO. 3 [Concomitant]
  7. CALCIUM WITH VITAMIN D [Concomitant]
  8. FISH OIL [Concomitant]

REACTIONS (6)
  - BLOOD POTASSIUM DECREASED [None]
  - DEHYDRATION [None]
  - FATIGUE [None]
  - INSOMNIA [None]
  - MIGRAINE [None]
  - MUSCLE SPASMS [None]
